FAERS Safety Report 5301855-9 (Version None)
Quarter: 2007Q1

REPORT INFORMATION
  Report Type: 
  Country: None (occurrence: None)
  Receive Date: 20070201
  Receipt Date: 20061212
  Transmission Date: 20070707
  Serious: No
  Sender: FDA-Public Use
  Company Number: 2006PV026845

PATIENT
  Age: 48 Year
  Sex: Male
  Weight: 91.6266 kg

DRUGS (1)
  1. BYETTA [Suspect]
     Indication: DIABETES MELLITUS NON-INSULIN-DEPENDENT
     Dosage: 10 MCG;SC
     Route: 058

REACTIONS (1)
  - BLOOD GLUCOSE INCREASED [None]
